FAERS Safety Report 9765370 (Version 2)
Quarter: 2014Q1

REPORT INFORMATION
  Report Type: Report from Study
  Country: GR (occurrence: GR)
  Receive Date: 20131217
  Receipt Date: 20140212
  Transmission Date: 20141002
  Serious: Yes (Hospitalization)
  Sender: FDA-Public Use
  Company Number: GR-ROCHE-1316468

PATIENT
  Age: 69 Year
  Sex: Male
  Weight: 63 kg

DRUGS (4)
  1. VISMODEGIB [Suspect]
     Indication: BASAL CELL CARCINOMA
     Dosage: DATE OF LAST DOSE PRIOR TO SAE ONSET: 13/NOV/2013
     Route: 048
     Dates: start: 20130516, end: 20131114
  2. VISMODEGIB [Suspect]
     Route: 048
     Dates: start: 20131117
  3. PARACETAMOL [Concomitant]
     Route: 065
     Dates: start: 20130708, end: 20130711
  4. OCTENIDINE HYDROCHLORIDE [Concomitant]
     Dosage: INDICATION: TUMOUR SUPERINFECTION.
     Route: 065
     Dates: start: 200501

REACTIONS (1)
  - Anaemia [Recovered/Resolved]
